FAERS Safety Report 21396930 (Version 4)
Quarter: 2022Q4

REPORT INFORMATION
  Report Type: Report from Study
  Country: GB (occurrence: GB)
  Receive Date: 20220930
  Receipt Date: 20221103
  Transmission Date: 20230112
  Serious: Yes (Hospitalization, Other)
  Sender: FDA-Public Use
  Company Number: GB-JNJFOC-20220948042

PATIENT
  Age: 82 Year
  Sex: Male

DRUGS (12)
  1. ABIRATERONE ACETATE [Suspect]
     Active Substance: ABIRATERONE ACETATE
     Indication: Prostate cancer metastatic
     Route: 048
     Dates: start: 20220627, end: 20220827
  2. PRAVASTATIN [Concomitant]
     Active Substance: PRAVASTATIN
     Dates: start: 20111104, end: 20220617
  3. PRAVASTATIN [Concomitant]
     Active Substance: PRAVASTATIN
     Dates: start: 20220907
  4. BIMATOPROST [Concomitant]
     Active Substance: BIMATOPROST
     Route: 065
     Dates: start: 2014
  5. DUTASTERIDE [Concomitant]
     Active Substance: DUTASTERIDE
     Route: 065
     Dates: start: 202010
  6. AMLODIPINE [Concomitant]
     Active Substance: AMLODIPINE BESYLATE
     Route: 065
  7. TAMSULOSIN [Concomitant]
     Active Substance: TAMSULOSIN
     Route: 065
  8. GONADORELIN [Concomitant]
     Active Substance: GONADORELIN
     Route: 065
  9. FOLIC ACID [Concomitant]
     Active Substance: FOLIC ACID
     Route: 065
     Dates: start: 20220722
  10. HYDROXOCOBALAMIN [Concomitant]
     Active Substance: HYDROXOCOBALAMIN
     Route: 065
     Dates: start: 202207
  11. DEXAMETHASONE [Concomitant]
     Active Substance: DEXAMETHASONE
     Route: 065
     Dates: start: 20220723, end: 20220817
  12. DEXAMETHASONE [Concomitant]
     Active Substance: DEXAMETHASONE
     Route: 065
     Dates: start: 20220818, end: 20220824

REACTIONS (4)
  - Pulmonary embolism [Recovered/Resolved]
  - Lower respiratory tract infection [Unknown]
  - Metastases to lung [Unknown]
  - Myocardial infarction [Recovered/Resolved]

NARRATIVE: CASE EVENT DATE: 20220823
